FAERS Safety Report 11820067 (Version 1)
Quarter: 2015Q4

REPORT INFORMATION
  Report Type: Spontaneous
  Country: US (occurrence: US)
  Receive Date: 20151210
  Receipt Date: 20151210
  Transmission Date: 20160305
  Serious: No
  Sender: FDA-Public Use
  Company Number: US-SUN PHARMACEUTICAL INDUSTRIES LTD-2015US-97686

PATIENT
  Age: 71 Year
  Sex: Female
  Weight: 81.63 kg

DRUGS (2)
  1. KETOROLAC [Suspect]
     Active Substance: KETOROLAC\KETOROLAC TROMETHAMINE
     Dosage: ONE DROP BID FOR 5 WEEKS FOR LEFT EYE
     Route: 047
     Dates: start: 20150512
  2. KETOROLAC [Suspect]
     Active Substance: KETOROLAC\KETOROLAC TROMETHAMINE
     Indication: CATARACT OPERATION
     Dosage: 1 DROP QID FOR ONE WEEK FOR RIGHT EYE
     Route: 047
     Dates: start: 20150413

REACTIONS (3)
  - Pain [Unknown]
  - Eye irritation [Unknown]
  - Headache [Unknown]
